FAERS Safety Report 7552743-9 (Version None)
Quarter: 2011Q2

REPORT INFORMATION
  Report Type: 
  Country: None (occurrence: None)
  Receive Date: 20110616
  Receipt Date: 20110601
  Transmission Date: 20111010
  Serious: Yes (Other)
  Sender: FDA-Public Use
  Company Number: FR-PFIZER INC-2011118193

PATIENT
  Age: 65 Year
  Sex: Female

DRUGS (17)
  1. DULCOLAX [Concomitant]
     Dosage: 5 MG, 1X/DAY
     Route: 048
     Dates: start: 20110501, end: 20110509
  2. ATARAX [Suspect]
     Indication: ANXIETY
     Dosage: 25 MG, 1X/DAY
     Route: 048
     Dates: start: 20110502, end: 20110511
  3. PREDNISOLONE [Concomitant]
     Dosage: 20 MG, 1X/DAY
     Route: 048
     Dates: start: 20110407
  4. PANTOPRAZOLE [Concomitant]
     Dosage: 40 MG, 1X/DAY
     Dates: start: 20110429
  5. HALDOL [Suspect]
     Indication: ANXIETY
     Dosage: UNK
     Route: 048
     Dates: start: 20110505, end: 20110509
  6. LEVEMIR [Concomitant]
     Indication: TYPE 2 DIABETES MELLITUS
     Dosage: 22 IU IN AM, 12 IU IN EVENING
     Route: 058
     Dates: start: 20110505, end: 20110508
  7. REPAGLINIDE [Concomitant]
     Indication: TYPE 2 DIABETES MELLITUS
     Dosage: 4 DF, 3X/DAY
     Route: 048
     Dates: end: 20110508
  8. HALDOL [Suspect]
     Indication: VOMITING
  9. OXYCONTIN [Suspect]
     Indication: PAIN
     Dosage: 10 MG, 2X/DAY
     Route: 048
     Dates: start: 20110505, end: 20110508
  10. LYRICA [Suspect]
     Indication: PAIN
     Dosage: 50 MG, 2X/DAY
     Route: 048
     Dates: start: 20110505, end: 20110511
  11. HALDOL [Suspect]
     Indication: NAUSEA
  12. LEXOMIL [Suspect]
     Indication: ANXIETY
     Dosage: 0.5 DF, 1X/DAY
     Route: 048
     Dates: start: 20110502, end: 20110509
  13. OXYCODONE HCL [Suspect]
     Indication: PAIN
     Dosage: UNK
     Route: 048
     Dates: start: 20110502
  14. ACETAMINOPHEN [Concomitant]
     Dosage: 500 MG , 2 TABLETS
     Route: 048
     Dates: start: 20110502
  15. FORLAX [Concomitant]
     Dosage: 10 G, 1X/DAY
     Route: 048
     Dates: start: 20110502, end: 20110510
  16. ALLOPURINOL [Concomitant]
     Dosage: 100 MG, 1X/DAY
     Route: 048
     Dates: start: 20110502, end: 20110508
  17. ATORVASTATIN CALCIUM [Concomitant]
     Dosage: 20 MG, 1X/DAY
     Route: 048
     Dates: end: 20110508

REACTIONS (5)
  - SLUGGISHNESS [None]
  - COGNITIVE DISORDER [None]
  - CONFUSIONAL STATE [None]
  - ANTEROGRADE AMNESIA [None]
  - DISORIENTATION [None]
